FAERS Safety Report 15789078 (Version 1)
Quarter: 2018Q4

REPORT INFORMATION
  Report Type: Spontaneous
  Country: US (occurrence: US)
  Receive Date: 20181228
  Receipt Date: 20181228
  Transmission Date: 20190205
  Serious: No
  Sender: FDA-Public Use
  Company Number: None

PATIENT

DRUGS (2)
  1. POTASSIUM  CHLORIDE POTASSIUM CHLORIDE [Suspect]
     Active Substance: POTASSIUM CHLORIDE
     Dosage: ?          OTHER ROUTE:INJECT, IV BAG?
  2. POTASSIUM CHLORIDE. [Suspect]
     Active Substance: POTASSIUM CHLORIDE
     Dosage: ?          OTHER ROUTE:INJECT, IV BAG?

REACTIONS (4)
  - Wrong product stored [None]
  - Physical product label issue [None]
  - Wrong product administered [None]
  - Product label confusion [None]
